FAERS Safety Report 5134903-X (Version None)
Quarter: 2006Q4

REPORT INFORMATION
  Report Type: 
  Country: None (occurrence: None)
  Receive Date: 20061019
  Receipt Date: 20061010
  Transmission Date: 20070319
  Serious: Yes (Death, Hospitalization)
  Sender: FDA-Public Use
  Company Number: 2006BI014553

PATIENT
  Age: 56 Year
  Sex: Male

DRUGS (6)
  1. AVONEX [Suspect]
     Indication: MULTIPLE SCLEROSIS
     Dosage: IM
     Route: 030
  2. AVONEX [Suspect]
     Indication: MULTIPLE SCLEROSIS
     Dosage: IM
     Route: 030
  3. AVONEX [Suspect]
     Indication: MULTIPLE SCLEROSIS
     Dosage: IM
     Route: 030
  4. BACLOFEN [Concomitant]
  5. ZANAFLEX [Concomitant]
  6. CARDURA [Concomitant]

REACTIONS (7)
  - CARDIO-RESPIRATORY ARREST [None]
  - DEPRESSION [None]
  - DYSPHAGIA [None]
  - HYPERTENSION [None]
  - INFLUENZA LIKE ILLNESS [None]
  - PNEUMONIA ASPIRATION [None]
  - SEPSIS [None]
